FAERS Safety Report 19605602 (Version 1)
Quarter: 2021Q3

REPORT INFORMATION
  Report Type: Spontaneous
  Country: US (occurrence: US)
  Receive Date: 20210724
  Receipt Date: 20210724
  Transmission Date: 20211014
  Serious: Yes (Life-Threatening)
  Sender: FDA-Public Use
  Company Number: US-GENBIOPRO-2114244

PATIENT
  Age: 29 Year
  Sex: Female
  Weight: 75.46 kg

DRUGS (2)
  1. MISOPROSTOL. [Interacting]
     Active Substance: MISOPROSTOL
     Route: 002
     Dates: start: 20210625, end: 20210625
  2. MIFEPRISTONE [Suspect]
     Active Substance: MIFEPRISTONE
     Indication: ABORTION INDUCED
     Route: 048
     Dates: start: 20210624, end: 20210624

REACTIONS (1)
  - Pulmonary embolism [Recovered/Resolved]

NARRATIVE: CASE EVENT DATE: 20210628
